FAERS Safety Report 23906471 (Version 1)
Quarter: 2024Q2

REPORT INFORMATION
  Report Type: Spontaneous
  Country: US (occurrence: US)
  Receive Date: 20240528
  Receipt Date: 20240528
  Transmission Date: 20240716
  Serious: No
  Sender: FDA-Public Use
  Company Number: US-GSKCCFUS-Case-02014394_AE-111807

PATIENT
  Age: 64 Year
  Sex: Female

DRUGS (1)
  1. TRELEGY ELLIPTA [Suspect]
     Active Substance: FLUTICASONE FUROATE\UMECLIDINIUM BROMIDE\VILANTEROL TRIFENATATE
     Indication: Asthma
     Dosage: UNK,  200/62.5/25MCG
     Route: 055

REACTIONS (5)
  - Asthma [Unknown]
  - Wrong technique in device usage process [Unknown]
  - Product dispensing error [Unknown]
  - Product prescribing issue [Unknown]
  - Product dose omission issue [Unknown]

NARRATIVE: CASE EVENT DATE: 20240515
